FAERS Safety Report 10270654 (Version 2)
Quarter: 2014Q3

REPORT INFORMATION
  Report Type: Spontaneous
  Country: AT (occurrence: AT)
  Receive Date: 20140701
  Receipt Date: 20140707
  Transmission Date: 20150326
  Serious: Yes (Other)
  Sender: FDA-Public Use
  Company Number: AT-PFIZER INC-2014178558

PATIENT
  Age: 83 Year
  Sex: Female

DRUGS (13)
  1. DABIGATRAN [Interacting]
     Active Substance: DABIGATRAN
     Dosage: 150 MG, 2X/DAY
  2. RIVASTIGMIN [Concomitant]
     Active Substance: RIVASTIGMINE
     Dosage: UNK
  3. MELOXICAM. [Interacting]
     Active Substance: MELOXICAM
     Dosage: UNK
  4. RAMIPRIL. [Concomitant]
     Active Substance: RAMIPRIL
     Dosage: UNK
  5. NEBIVOLOL [Concomitant]
     Active Substance: NEBIVOLOL
     Dosage: UNK
  6. PANTOPRAZOLE [Suspect]
     Active Substance: PANTOPRAZOLE SODIUM
     Dosage: UNK
  7. LEVOTHYROXINE [Interacting]
     Active Substance: LEVOTHYROXINE
     Dosage: UNK
  8. SIMVASTATIN. [Interacting]
     Active Substance: SIMVASTATIN
     Dosage: UNK
  9. INDAPAMIDE. [Concomitant]
     Active Substance: INDAPAMIDE
     Dosage: UNK
  10. DIGITOXIN [Concomitant]
     Active Substance: DIGITOXIN
     Dosage: UNK
  11. FUROSEMIDE. [Concomitant]
     Active Substance: FUROSEMIDE
     Dosage: UNK
  12. RISPERIDONE. [Concomitant]
     Active Substance: RISPERIDONE
     Dosage: UNK
  13. SERTRALINE HCL [Interacting]
     Active Substance: SERTRALINE HYDROCHLORIDE
     Dosage: UNK

REACTIONS (7)
  - Drug interaction [Unknown]
  - Activated partial thromboplastin time prolonged [Unknown]
  - Chronic gastritis [Unknown]
  - Anaemia [Unknown]
  - Gastrointestinal haemorrhage [Recovered/Resolved]
  - Prothrombin time shortened [Unknown]
  - Renal impairment [Unknown]
